FAERS Safety Report 8334175-9 (Version None)
Quarter: 2012Q2

REPORT INFORMATION
  Report Type: 
  Country: None (occurrence: None)
  Receive Date: 20120503
  Receipt Date: 20120426
  Transmission Date: 20120825
  Serious: Yes (Other)
  Sender: FDA-Public Use
  Company Number: HU-UCBSA-056447

PATIENT
  Age: 82 Year
  Sex: Male

DRUGS (6)
  1. NEUPRO [Suspect]
     Route: 062
  2. NEUPRO [Suspect]
     Route: 062
  3. NEUPRO [Suspect]
     Indication: PARKINSON'S DISEASE
     Dosage: FOR ONE WEEK
     Route: 062
     Dates: start: 20120401, end: 20120401
  4. NEUPRO [Suspect]
     Route: 062
  5. NEUPRO [Suspect]
     Route: 062
  6. NEUPRO [Suspect]
     Route: 062

REACTIONS (2)
  - DYSPNOEA [None]
  - COUGH [None]
